FAERS Safety Report 19638675 (Version 5)
Quarter: 2025Q2

REPORT INFORMATION
  Report Type: Report from Study
  Country: US (occurrence: US)
  Receive Date: 20210730
  Receipt Date: 20250603
  Transmission Date: 20250717
  Serious: Yes (Other)
  Sender: TAKEDA
  Company Number: US-TAKEDA-2021TUS047243

PATIENT
  Sex: Female

DRUGS (2)
  1. VEDOLIZUMAB [Suspect]
     Active Substance: VEDOLIZUMAB
     Indication: Crohn^s disease
  2. VEDOLIZUMAB [Suspect]
     Active Substance: VEDOLIZUMAB
     Indication: Gastrooesophageal reflux disease

REACTIONS (3)
  - Systemic lupus erythematosus [Not Recovered/Not Resolved]
  - Crohn^s disease [Not Recovered/Not Resolved]
  - COVID-19 [Recovering/Resolving]

NARRATIVE: CASE EVENT DATE: 20210101
